FAERS Safety Report 13417000 (Version 4)
Quarter: 2017Q2

REPORT INFORMATION
  Report Type: Other
  Country: US (occurrence: US)
  Receive Date: 20170407
  Receipt Date: 20170522
  Transmission Date: 20170830
  Serious: Yes (Hospitalization, Other)
  Sender: FDA-Public Use
  Company Number: US-ACORDA-ACO_136158_2017

PATIENT
  Age: 68 Year
  Sex: Female

DRUGS (11)
  1. OXYCODONE HYDROCHLORIDE. [Concomitant]
     Active Substance: OXYCODONE HYDROCHLORIDE
     Indication: PRODUCT USED FOR UNKNOWN INDICATION
     Dosage: 30 MG, Q 6 HOURS
     Route: 048
  2. ATENOLOL. [Concomitant]
     Active Substance: ATENOLOL
     Indication: PRODUCT USED FOR UNKNOWN INDICATION
     Dosage: 50 MG, QD
     Route: 048
  3. AMPYRA [Suspect]
     Active Substance: DALFAMPRIDINE
     Dosage: UNK
     Route: 065
  4. LYRICA [Concomitant]
     Active Substance: PREGABALIN
     Indication: PRODUCT USED FOR UNKNOWN INDICATION
     Dosage: 75 MG, BID
     Route: 048
  5. VITAMIN D3 [Concomitant]
     Active Substance: CHOLECALCIFEROL
     Indication: PRODUCT USED FOR UNKNOWN INDICATION
     Dosage: 5000 IU, QD
     Route: 048
  6. VENLAFAXINE HYDROCLORIDE ER [Concomitant]
     Indication: PRODUCT USED FOR UNKNOWN INDICATION
     Dosage: 150 MG, QAM
     Route: 048
  7. ZOLPIDEM TARTRATE. [Concomitant]
     Active Substance: ZOLPIDEM TARTRATE
     Indication: PRODUCT USED FOR UNKNOWN INDICATION
     Route: 065
  8. DYAZIDE [Concomitant]
     Active Substance: HYDROCHLOROTHIAZIDE\TRIAMTERENE
     Indication: PRODUCT USED FOR UNKNOWN INDICATION
     Dosage: 37.5MG-25MG
     Route: 065
  9. OMEPRAZOLE. [Concomitant]
     Active Substance: OMEPRAZOLE
     Indication: PRODUCT USED FOR UNKNOWN INDICATION
     Dosage: 40 MG, QD
     Route: 048
  10. AMPYRA [Suspect]
     Active Substance: DALFAMPRIDINE
     Indication: MULTIPLE SCLEROSIS
     Dosage: 10 MG, Q 12 HRS
     Route: 048
     Dates: start: 20150928
  11. IBUPROFEN. [Concomitant]
     Active Substance: IBUPROFEN
     Indication: PRODUCT USED FOR UNKNOWN INDICATION
     Dosage: 800 MG, QD WITH FOOD
     Route: 048

REACTIONS (37)
  - Hand fracture [Not Recovered/Not Resolved]
  - Deafness [Unknown]
  - Hypoaesthesia [Unknown]
  - Chest pain [Unknown]
  - Urinary tract infection [Unknown]
  - Viral upper respiratory tract infection [Unknown]
  - Gait disturbance [Unknown]
  - Fatigue [Unknown]
  - Renal failure [Unknown]
  - Respiratory failure [Unknown]
  - Vision blurred [Unknown]
  - Cervical spinal stenosis [Unknown]
  - Back pain [Unknown]
  - Musculoskeletal pain [Unknown]
  - Loss of personal independence in daily activities [Unknown]
  - Hypokalaemia [Unknown]
  - Oxygen saturation decreased [Unknown]
  - Arthralgia [Unknown]
  - Pain [Unknown]
  - Spinal osteoarthritis [Unknown]
  - Malaise [Unknown]
  - Sepsis [Unknown]
  - Paraesthesia [Unknown]
  - Anxiety [Unknown]
  - General physical health deterioration [Unknown]
  - Off label use [Unknown]
  - Spinal cord compression [Recovering/Resolving]
  - Pneumonia [Recovered/Resolved]
  - Condition aggravated [Unknown]
  - Fall [Recovered/Resolved]
  - Diplopia [Unknown]
  - Dysphagia [Unknown]
  - Memory impairment [Unknown]
  - Urinary hesitation [Unknown]
  - Overweight [Unknown]
  - Asthenia [Unknown]
  - Balance disorder [Unknown]

NARRATIVE: CASE EVENT DATE: 201609
